FAERS Safety Report 5558793-6 (Version None)
Quarter: 2007Q4

REPORT INFORMATION
  Report Type: 
  Country: None (occurrence: None)
  Receive Date: 20071214
  Receipt Date: 20071203
  Transmission Date: 20080405
  Serious: Yes (Other)
  Sender: FDA-Public Use
  Company Number: US-PFIZER INC-2007103169

PATIENT
  Sex: Female
  Weight: 59.09 kg

DRUGS (1)
  1. CHANTIX [Suspect]
     Indication: SMOKING CESSATION THERAPY
     Route: 048
     Dates: start: 20071127, end: 20071201

REACTIONS (5)
  - BIPOLAR DISORDER [None]
  - FEELING ABNORMAL [None]
  - IRRITABILITY [None]
  - PERSONALITY CHANGE [None]
  - SCREAMING [None]
